FAERS Safety Report 6634014-8 (Version None)
Quarter: 2010Q1

REPORT INFORMATION
  Report Type: 
  Country: None (occurrence: None)
  Receive Date: 20100315
  Receipt Date: 20100303
  Transmission Date: 20100710
  Serious: Yes (Other)
  Sender: FDA-Public Use
  Company Number: PHHY2010GB13749

PATIENT
  Sex: Male

DRUGS (4)
  1. CLOZARIL [Suspect]
     Indication: SCHIZOPHRENIA
     Dosage: 125 MG MANE AND 200 MG NOCTE
     Route: 048
     Dates: start: 20100115
  2. CITALOPRAM HYDROBROMIDE [Concomitant]
  3. DIAZEPAM [Concomitant]
  4. DRUG THERAPY NOS [Concomitant]
     Indication: ACNE

REACTIONS (2)
  - TACHYCARDIA [None]
  - VISION BLURRED [None]
